FAERS Safety Report 25508872 (Version 2)
Quarter: 2025Q4

REPORT INFORMATION
  Report Type: Report from Study
  Country: JP (occurrence: JP)
  Receive Date: 20250703
  Receipt Date: 20251210
  Transmission Date: 20260117
  Serious: Yes (Other)
  Sender: UCB
  Company Number: JP-UCBJ-CD202508520UCBPHAPROD

PATIENT
  Age: 12 Year
  Weight: 52 kg

DRUGS (16)
  1. FENFLURAMINE HYDROCHLORIDE [Suspect]
     Active Substance: FENFLURAMINE HYDROCHLORIDE
     Indication: Lennox-Gastaut syndrome
     Dosage: 0.05 MILLIGRAM/KILOGRAM, 2X/DAY (BID)
  2. FENFLURAMINE HYDROCHLORIDE [Suspect]
     Active Substance: FENFLURAMINE HYDROCHLORIDE
     Dosage: 0.08 MILLIGRAM/KILOGRAM, 2X/DAY (BID)
  3. FENFLURAMINE HYDROCHLORIDE [Suspect]
     Active Substance: FENFLURAMINE HYDROCHLORIDE
     Dosage: 0.1 MILLIGRAM/KILOGRAM, 2X/DAY (BID)
  4. FENFLURAMINE HYDROCHLORIDE [Suspect]
     Active Substance: FENFLURAMINE HYDROCHLORIDE
     Dosage: 0.12 MILLIGRAM/KILOGRAM, 2X/DAY (BID)
  5. FENFLURAMINE HYDROCHLORIDE [Suspect]
     Active Substance: FENFLURAMINE HYDROCHLORIDE
     Dosage: 0.1 MILLIGRAM/KILOGRAM, 2X/DAY (BID)
  6. VIMPAT [Concomitant]
     Active Substance: LACOSAMIDE
     Indication: Lennox-Gastaut syndrome
     Dosage: 300 MILLIGRAM, DAILY
  7. VIMPAT [Concomitant]
     Active Substance: LACOSAMIDE
     Dosage: 200 MILLIGRAM, DAILY
  8. NITRAZEPAM [Concomitant]
     Active Substance: NITRAZEPAM
     Indication: Product used for unknown indication
     Dosage: UNK
  9. ROZEREM [Concomitant]
     Active Substance: RAMELTEON
     Indication: Product used for unknown indication
     Dosage: UNK
  10. FYCOMPA [Concomitant]
     Active Substance: PERAMPANEL
     Indication: Lennox-Gastaut syndrome
     Dosage: 6 MILLIGRAM, ONCE DAILY (QD)
  11. LAMICTAL [Concomitant]
     Active Substance: LAMOTRIGINE
     Indication: Lennox-Gastaut syndrome
     Dosage: 300 MILLIGRAM, ONCE DAILY (QD)
  12. MYSTAN [Concomitant]
     Active Substance: CLOBAZAM
     Indication: Lennox-Gastaut syndrome
     Dosage: 5 MILLIGRAM, ONCE DAILY (QD)
  13. MYSTAN [Concomitant]
     Active Substance: CLOBAZAM
     Dosage: 2.5 MILLIGRAM, ONCE DAILY (QD)
  14. VALPROATE SODIUM [Concomitant]
     Active Substance: VALPROATE SODIUM
     Indication: Lennox-Gastaut syndrome
     Dosage: 200 MILLIGRAM, ONCE DAILY (QD)
  15. VALPROATE SODIUM [Concomitant]
     Active Substance: VALPROATE SODIUM
     Dosage: 400 MILLIGRAM, ONCE DAILY (QD)
  16. VALPROATE SODIUM [Concomitant]
     Active Substance: VALPROATE SODIUM
     Dosage: 600 MILLIGRAM, ONCE DAILY (QD)

REACTIONS (6)
  - Tonic convulsion [Unknown]
  - Weight decreased [Not Recovered/Not Resolved]
  - Somnolence [Recovering/Resolving]
  - Decreased appetite [Recovering/Resolving]
  - Prescribed underdose [Unknown]
  - Off label use [Unknown]
